FAERS Safety Report 12602860 (Version 1)
Quarter: 2016Q3

REPORT INFORMATION
  Report Type: Spontaneous
  Country: FR (occurrence: FR)
  Receive Date: 20160728
  Receipt Date: 20160728
  Transmission Date: 20161109
  Serious: Yes (Hospitalization)
  Sender: FDA-Public Use
  Company Number: FR-PFIZER INC-2016355806

PATIENT
  Age: 25 Year
  Sex: Female
  Weight: 75 kg

DRUGS (6)
  1. PROSTINE E2 [Suspect]
     Active Substance: DINOPROSTONE
     Dosage: UNK
     Dates: start: 20160129, end: 20160129
  2. AROLAC [Suspect]
     Active Substance: LISURIDE MALEATE
     Dosage: UNK
     Dates: start: 20160129, end: 20160202
  3. PARACETAMOL [Suspect]
     Active Substance: ACETAMINOPHEN
     Dosage: UNK
     Dates: start: 20160129, end: 20160201
  4. SYNTOCINON [Suspect]
     Active Substance: OXYTOCIN
     Dosage: UNK
     Dates: start: 20160129
  5. CLAMOXYL /00249601/ [Suspect]
     Active Substance: AMOXICILLIN
     Indication: HYPERTHERMIA THERAPY
     Dosage: 2 G, SINGLE
     Route: 051
     Dates: start: 20160129, end: 20160129
  6. BIPROFENID [Suspect]
     Active Substance: KETOPROFEN
     Dosage: UNK
     Dates: start: 20160129, end: 20160201

REACTIONS (12)
  - Proteinuria [None]
  - Hypoalbuminaemia [None]
  - Toxic skin eruption [None]
  - Pyrexia [Recovered/Resolved]
  - Rash maculo-papular [Recovered/Resolved]
  - Viral infection [None]
  - Drug reaction with eosinophilia and systemic symptoms [None]
  - Lymphadenopathy [None]
  - Hypergammaglobulinaemia [None]
  - Leukocytosis [Recovered/Resolved]
  - Face oedema [Recovered/Resolved]
  - Exposure during pregnancy [None]

NARRATIVE: CASE EVENT DATE: 20160130
